FAERS Safety Report 5702463-8 (Version None)
Quarter: 2008Q2

REPORT INFORMATION
  Report Type: 
  Country: None (occurrence: None)
  Receive Date: 20080410
  Receipt Date: 20080410
  Transmission Date: 20081010
  Serious: Yes (Hospitalization)
  Sender: FDA-Public Use
  Company Number: None

PATIENT
  Age: 60 Year
  Sex: Male
  Weight: 103.8737 kg

DRUGS (6)
  1. HYDROCHLOROTHIAZIDE [Suspect]
     Indication: HYPERTENSION
     Dosage: 25MG DAILY INJ
  2. ZOCOR [Concomitant]
  3. POTASSIUM CHLORIDE [Concomitant]
  4. PRILOSEC [Concomitant]
  5. METOPROLOL TARTRATE [Concomitant]
  6. ASPIRIN [Concomitant]

REACTIONS (2)
  - PANCREATITIS [None]
  - PSEUDOCYST [None]
